FAERS Safety Report 19930331 (Version 2)
Quarter: 2022Q1

REPORT INFORMATION
  Report Type: Report from Study
  Country: US (occurrence: US)
  Receive Date: 20211007
  Receipt Date: 20220131
  Transmission Date: 20220423
  Serious: Yes (Hospitalization)
  Sender: FDA-Public Use
  Company Number: US-TEVA-2021-US-1960760

PATIENT
  Age: 27 Year
  Sex: Female
  Weight: 81.65 kg

DRUGS (5)
  1. CLOZAPINE [Suspect]
     Active Substance: CLOZAPINE
     Indication: Agitation
     Route: 065
     Dates: start: 2020
  2. CLOZAPINE [Suspect]
     Active Substance: CLOZAPINE
     Indication: Psychotic disorder
  3. LITHIUM [Concomitant]
     Active Substance: LITHIUM
  4. SEROQUEL [Concomitant]
     Active Substance: QUETIAPINE FUMARATE
  5. THORAZINE [Concomitant]
     Active Substance: CHLORPROMAZINE

REACTIONS (3)
  - Aggression [Not Recovered/Not Resolved]
  - Behaviour disorder [Recovering/Resolving]
  - Off label use [Unknown]

NARRATIVE: CASE EVENT DATE: 20210101
